FAERS Safety Report 5150324-8 (Version None)
Quarter: 2006Q4

REPORT INFORMATION
  Report Type: 
  Country: None (occurrence: None)
  Receive Date: 20061114
  Receipt Date: 20061102
  Transmission Date: 20070319
  Serious: Yes (Hospitalization, Other)
  Sender: FDA-Public Use
  Company Number: PHBS2006ES17040

PATIENT
  Age: 54 Year
  Sex: Female

DRUGS (1)
  1. ZOMETA [Suspect]
     Indication: METASTASES TO BONE
     Dosage: 4 MG, UNK
     Route: 042
     Dates: start: 20050101, end: 20060601

REACTIONS (8)
  - BONE DISORDER [None]
  - BONE LESION [None]
  - ENTEROCOCCAL INFECTION [None]
  - OSTEONECROSIS [None]
  - STREPTOCOCCAL INFECTION [None]
  - TOOTH LOSS [None]
  - ULCER [None]
  - WOUND DEBRIDEMENT [None]
